FAERS Safety Report 7864051-7 (Version None)
Quarter: 2011Q4

REPORT INFORMATION
  Report Type: 
  Country: None (occurrence: None)
  Receive Date: 20111028
  Receipt Date: 20111018
  Transmission Date: 20120403
  Serious: Yes (Other)
  Sender: FDA-Public Use
  Company Number: FR-JNJFOC-20110907707

PATIENT
  Sex: Male

DRUGS (2)
  1. ACETAMINOPHEN AND TRAMADOL HCL [Suspect]
     Indication: RIB FRACTURE
     Dosage: 325+37.5 MG, 6 TO 8 TABLETS DAILY
     Route: 048
     Dates: start: 20110825, end: 20110830
  2. IBUPROFEN [Concomitant]
     Route: 065

REACTIONS (13)
  - INSOMNIA [None]
  - NAUSEA [None]
  - TREMOR [None]
  - WEIGHT DECREASED [None]
  - WITHDRAWAL SYNDROME [None]
  - HALLUCINATION [None]
  - FATIGUE [None]
  - SOMNOLENCE [None]
  - CONFUSIONAL STATE [None]
  - DECREASED APPETITE [None]
  - HEADACHE [None]
  - FOOD AVERSION [None]
  - HYPERHIDROSIS [None]
